FAERS Safety Report 7783064-7 (Version None)
Quarter: 2011Q3

REPORT INFORMATION
  Report Type: 
  Country: None (occurrence: None)
  Receive Date: 20110928
  Receipt Date: 20110921
  Transmission Date: 20111222
  Serious: No
  Sender: FDA-Public Use
  Company Number: US-PFIZER INC-2011225821

PATIENT
  Sex: Female

DRUGS (2)
  1. TOVIAZ [Suspect]
     Dosage: 8 MG, UNK
  2. TOVIAZ [Suspect]
     Dosage: 4 MG, UNK

REACTIONS (1)
  - SKIN LESION [None]
